FAERS Safety Report 6783754-9 (Version None)
Quarter: 2010Q2

REPORT INFORMATION
  Report Type: 
  Country: None (occurrence: None)
  Receive Date: 20100622
  Receipt Date: 20100601
  Transmission Date: 20101027
  Serious: Yes (Hospitalization, Other)
  Sender: FDA-Public Use
  Company Number: US-BAYER-201024262NA

PATIENT
  Age: 67 Year
  Sex: Male
  Weight: 85 kg

DRUGS (11)
  1. ADALAT [Suspect]
     Indication: DRUG USE FOR UNKNOWN INDICATION
  2. PIOGLITAZONE HYDROCHLORIDE [Suspect]
     Indication: CARDIOVASCULAR EVENT PROPHYLAXIS
     Dates: start: 20080514, end: 20080610
  3. PIOGLITAZONE HYDROCHLORIDE [Suspect]
     Dates: start: 20080611, end: 20080710
  4. PIOGLITAZONE HYDROCHLORIDE [Suspect]
     Dates: start: 20080711, end: 20091112
  5. DIOVAN HCT [Suspect]
     Dosage: AS USED: 160/25 MG
  6. DIOVAN HCT [Suspect]
     Dosage: AS USED: 80/12.5 MG
  7. LIPITOR [Concomitant]
  8. COVERSYL [Concomitant]
  9. LYRICA [Concomitant]
  10. ASPIRIN [Concomitant]
  11. COUMADIN [Concomitant]

REACTIONS (3)
  - BLADDER CANCER [None]
  - MANTLE CELL LYMPHOMA [None]
  - RENAL FAILURE [None]
